FAERS Safety Report 10926875 (Version 1)
Quarter: 2015Q1

REPORT INFORMATION
  Report Type: Spontaneous
  Country: US (occurrence: None)
  Receive Date: 20150223
  Receipt Date: 20150223
  Transmission Date: 20150721
  Serious: No
  Sender: FDA-Public Use
  Company Number: TPA2011A08304

PATIENT
  Age: 64 Year
  Sex: Male

DRUGS (2)
  1. UNKNOWN MEDICINE (ANTIHYPERTENSIVES) [Concomitant]
  2. ULORIC [Suspect]
     Active Substance: FEBUXOSTAT
     Indication: GOUT
     Route: 048
     Dates: start: 201108, end: 201108

REACTIONS (1)
  - Rash [None]

NARRATIVE: CASE EVENT DATE: 201108
